FAERS Safety Report 5820294-5 (Version None)
Quarter: 2008Q3

REPORT INFORMATION
  Report Type: 
  Country: None (occurrence: None)
  Receive Date: 20080724
  Receipt Date: 20070702
  Transmission Date: 20090109
  Serious: No
  Sender: FDA-Public Use
  Company Number: A0653909A

PATIENT
  Age: 64 Year
  Sex: Female
  Weight: 76.8 kg

DRUGS (1)
  1. AVANDIA [Suspect]
     Indication: DIABETES MELLITUS
     Dosage: 2MG PER DAY
     Route: 048
     Dates: start: 20070516, end: 20070517

REACTIONS (1)
  - EYELID OEDEMA [None]
